FAERS Safety Report 25394545 (Version 2)
Quarter: 2025Q2

REPORT INFORMATION
  Report Type: Spontaneous
  Country: JP (occurrence: JP)
  Receive Date: 20250604
  Receipt Date: 20250612
  Transmission Date: 20250717
  Serious: Yes (Other)
  Sender: AMGEN
  Company Number: JP-AMGEN-JPNSP2025087232

PATIENT
  Age: 3 Decade
  Sex: Female

DRUGS (3)
  1. IMDELLTRA [Suspect]
     Active Substance: TARLATAMAB-DLLE
     Indication: Small cell lung cancer
     Route: 040
     Dates: start: 20250423, end: 20250522
  2. IMDELLTRA [Suspect]
     Active Substance: TARLATAMAB-DLLE
     Route: 040
     Dates: start: 20250529
  3. MIROGABALIN BESYLATE [Suspect]
     Active Substance: MIROGABALIN BESYLATE
     Indication: Seizure
     Route: 065

REACTIONS (2)
  - Immune effector cell-associated neurotoxicity syndrome [Recovered/Resolved]
  - Rash [Not Recovered/Not Resolved]

NARRATIVE: CASE EVENT DATE: 20250424
